FAERS Safety Report 21000768 (Version 1)
Quarter: 2022Q2

REPORT INFORMATION
  Report Type: Spontaneous
  Country: US (occurrence: None)
  Receive Date: 20220623
  Receipt Date: 20220623
  Transmission Date: 20220720
  Serious: Yes (Other)
  Sender: FDA-Public Use
  Company Number: US-ROCHE-3123438

PATIENT
  Sex: Female

DRUGS (6)
  1. XOLAIR [Suspect]
     Active Substance: OMALIZUMAB
     Indication: Product used for unknown indication
     Route: 065
  2. DUPIXENT [Concomitant]
     Active Substance: DUPILUMAB
  3. DAPSONE [Concomitant]
     Active Substance: DAPSONE
  4. XARELTO [Concomitant]
     Active Substance: RIVAROXABAN
  5. TESTOSTERONE [Concomitant]
     Active Substance: TESTOSTERONE
  6. PROGESTERONE [Concomitant]
     Active Substance: PROGESTERONE

REACTIONS (1)
  - Pulmonary embolism [Unknown]
